FAERS Safety Report 6106737-0 (Version None)
Quarter: 2009Q1

REPORT INFORMATION
  Report Type: 
  Country: None (occurrence: None)
  Receive Date: 20090304
  Receipt Date: 20090217
  Transmission Date: 20090719
  Serious: Yes (Other)
  Sender: FDA-Public Use
  Company Number: 2008035568

PATIENT
  Sex: Female

DRUGS (2)
  1. FRAGMIN [Suspect]
     Dosage: SUBCUTANEOUS
     Route: 058
  2. ANALGESICS [Concomitant]

REACTIONS (1)
  - AMAUROSIS FUGAX [None]
